FAERS Safety Report 20103905 (Version 1)
Quarter: 2021Q4

REPORT INFORMATION
  Report Type: Spontaneous
  Country: US (occurrence: US)
  Receive Date: 20211123
  Receipt Date: 20211123
  Transmission Date: 20220303
  Serious: No
  Sender: FDA-Public Use
  Company Number: US-TEVA-2021-US-1978819

PATIENT
  Age: 62 Year
  Sex: Female

DRUGS (1)
  1. ATENOLOL [Suspect]
     Active Substance: ATENOLOL
     Dosage: PRESCRIBED THE TEVA BRAND ABOUT 5 YEARS AGO
     Route: 065

REACTIONS (1)
  - Palpitations [Unknown]
